FAERS Safety Report 10341694 (Version 2)
Quarter: 2014Q3

REPORT INFORMATION
  Report Type: Spontaneous
  Country: US (occurrence: None)
  Receive Date: 20140723
  Receipt Date: 20140804
  Transmission Date: 20150326
  Serious: Yes (Other)
  Sender: FDA-Public Use
  Company Number: UNT-2014-003952

PATIENT
  Age: 51 Year
  Sex: Female

DRUGS (1)
  1. REMODULIN [Suspect]
     Active Substance: TREPROSTINIL
     Indication: PULMONARY ARTERIAL HYPERTENSION
     Route: 041
     Dates: start: 20140703

REACTIONS (8)
  - Leukaemia [None]
  - Injection site bruising [None]
  - Swelling [None]
  - Dyspnoea [None]
  - Injection site vesicles [None]
  - Heart rate increased [None]
  - Thermal burn [None]
  - Hypersensitivity [None]
